FAERS Safety Report 9171975 (Version 1)
Quarter: 2013Q1

REPORT INFORMATION
  Report Type: Spontaneous
  Country: TR (occurrence: TR)
  Receive Date: 20130319
  Receipt Date: 20130319
  Transmission Date: 20140127
  Serious: Yes (Other)
  Sender: FDA-Public Use
  Company Number: TR-PFIZER INC-2013088637

PATIENT
  Age: 55 Year
  Sex: Male

DRUGS (2)
  1. PIPERACILLIN/TAZOBACTAM [Suspect]
     Indication: DIABETIC FOOT INFECTION
     Dosage: 4.5 G, 3X/DAY
  2. DAPTOMYCIN [Suspect]
     Indication: DIABETIC FOOT INFECTION
     Dosage: 500 MG, 1X/DAY

REACTIONS (3)
  - Sudden hearing loss [Not Recovered/Not Resolved]
  - Tinnitus [None]
  - Ear discomfort [None]
